FAERS Safety Report 20712834 (Version 1)
Quarter: 2022Q2

REPORT INFORMATION
  Report Type: Spontaneous
  Country: FR (occurrence: FR)
  Receive Date: 20220415
  Receipt Date: 20220415
  Transmission Date: 20220721
  Serious: Yes (Hospitalization)
  Sender: FDA-Public Use
  Company Number: None

PATIENT
  Age: 64 Year
  Sex: Female
  Weight: 64 kg

DRUGS (3)
  1. FLUOXETINE HYDROCHLORIDE [Suspect]
     Active Substance: FLUOXETINE HYDROCHLORIDE
     Indication: Suicide attempt
     Dosage: 2 BOXES OF 14 CP OF 20 MG
     Route: 048
     Dates: start: 20220309, end: 20220309
  2. ACETAMINOPHEN\TRAMADOL [Suspect]
     Active Substance: ACETAMINOPHEN\TRAMADOL
     Indication: Suicide attempt
     Dosage: 37.5MG/325MG, 2 BOXES OF 20 CP OF IXPRIM 317.5/325 MG
     Route: 048
     Dates: start: 20220309, end: 20220309
  3. OXAZEPAM [Suspect]
     Active Substance: OXAZEPAM
     Indication: Suicide attempt
     Dosage: 50 MG, SCORED, 4 BOXES OF 20 CP OF 50 MG
     Route: 048
     Dates: start: 20220309, end: 20220309

REACTIONS (3)
  - Toxicity to various agents [Recovered/Resolved]
  - Somnolence [Recovered/Resolved]
  - Suicide attempt [Unknown]

NARRATIVE: CASE EVENT DATE: 20220309
